FAERS Safety Report 6097813-X (Version None)
Quarter: 2009Q1

REPORT INFORMATION
  Report Type: 
  Country: None (occurrence: None)
  Receive Date: 20090227
  Receipt Date: 20090224
  Transmission Date: 20090719
  Serious: Yes (Death)
  Sender: FDA-Public Use
  Company Number: US-JNJFOC-20090206013

PATIENT
  Age: 18 Year
  Sex: Female

DRUGS (7)
  1. FLEXERIL [Suspect]
     Indication: DRUG USE FOR UNKNOWN INDICATION
  2. TRAMADOL HCL [Interacting]
     Indication: DRUG USE FOR UNKNOWN INDICATION
  3. ULTRAM [Interacting]
     Indication: DRUG USE FOR UNKNOWN INDICATION
  4. KLONOPIN [Interacting]
     Indication: DRUG USE FOR UNKNOWN INDICATION
  5. UNISOM [Interacting]
     Indication: DRUG USE FOR UNKNOWN INDICATION
  6. XANAX [Interacting]
     Indication: DRUG USE FOR UNKNOWN INDICATION
  7. ZOLOFT [Interacting]
     Indication: DRUG USE FOR UNKNOWN INDICATION

REACTIONS (2)
  - DRUG INTERACTION [None]
  - DRUG TOXICITY [None]
